FAERS Safety Report 6555911-8 (Version None)
Quarter: 2010Q1

REPORT INFORMATION
  Report Type: 
  Country: None (occurrence: None)
  Receive Date: 20100128
  Receipt Date: 20100119
  Transmission Date: 20100710
  Serious: Yes (Hospitalization)
  Sender: FDA-Public Use
  Company Number: FR-JNJFOC-20100108510

PATIENT
  Age: 43 Year
  Sex: Male

DRUGS (12)
  1. HALDOL [Suspect]
     Indication: PSYCHOTIC DISORDER
     Route: 048
     Dates: start: 20090622, end: 20090714
  2. HALDOL [Suspect]
     Route: 030
     Dates: start: 20090624, end: 20090702
  3. HALDOL DECANOAS [Suspect]
     Indication: PSYCHOTIC DISORDER
     Route: 030
     Dates: start: 20090706, end: 20090706
  4. LARGACTIL [Suspect]
     Indication: PSYCHOTIC DISORDER
     Route: 065
  5. ZYPREXA [Suspect]
     Indication: PSYCHOTIC DISORDER
     Route: 065
  6. PARKINANE [Suspect]
     Indication: PSYCHOTIC DISORDER
     Route: 065
     Dates: start: 20090623, end: 20090806
  7. LEPTICUR [Suspect]
     Indication: DRUG USE FOR UNKNOWN INDICATION
     Route: 065
     Dates: start: 20090706, end: 20090901
  8. SERESTA [Suspect]
     Indication: DRUG USE FOR UNKNOWN INDICATION
     Route: 065
  9. IMOVANE [Suspect]
     Indication: DRUG USE FOR UNKNOWN INDICATION
     Route: 065
  10. THERALENE [Suspect]
     Indication: DRUG USE FOR UNKNOWN INDICATION
     Route: 065
     Dates: start: 20090730, end: 20090805
  11. NEXIUM [Concomitant]
     Route: 048
     Dates: start: 20090714, end: 20090716
  12. ATARAX [Concomitant]
     Dates: start: 20090817

REACTIONS (6)
  - ABDOMINAL PAIN [None]
  - CHOLESTASIS [None]
  - HEPATIC ENZYME INCREASED [None]
  - HEPATITIS [None]
  - JAUNDICE [None]
  - TRANSAMINASES INCREASED [None]
